FAERS Safety Report 17656535 (Version 1)
Quarter: 2020Q2

REPORT INFORMATION
  Report Type: Spontaneous
  Country: US (occurrence: US)
  Receive Date: 20200410
  Receipt Date: 20200410
  Transmission Date: 20200713
  Serious: No
  Sender: FDA-Public Use
  Company Number: US-VERTEX PHARMACEUTICALS-2020-008037

PATIENT
  Age: 44 Year
  Sex: Male
  Weight: 68 kg

DRUGS (15)
  1. CREON [Concomitant]
     Active Substance: PANCRELIPASE AMYLASE\PANCRELIPASE LIPASE\PANCRELIPASE PROTEASE
  2. PROMACTA [Concomitant]
     Active Substance: ELTROMBOPAG OLAMINE
  3. MAGNESIUM [Concomitant]
     Active Substance: MAGNESIUM
  4. PROGRAF [Concomitant]
     Active Substance: TACROLIMUS
  5. TRIKAFTA [Suspect]
     Active Substance: ELEXACAFTOR\IVACAFTOR\TEZACAFTOR
     Indication: CYSTIC FIBROSIS
     Dosage: 2 TABLETS(100MG ELEXACAFTOR/75MG TEZACAFTOR/50MG IVACAFTOR) TWICE A WEEK
     Route: 048
     Dates: start: 20200324
  6. VITAMIN D [COLECALCIFEROL] [Concomitant]
     Active Substance: CHOLECALCIFEROL
  7. CRESTOR [Concomitant]
     Active Substance: ROSUVASTATIN CALCIUM
  8. VALCYTE [Concomitant]
     Active Substance: VALGANCICLOVIR HYDROCHLORIDE
  9. AMLODIPINE BESILATE [Concomitant]
     Active Substance: AMLODIPINE BESYLATE
  10. PREDNISONE. [Concomitant]
     Active Substance: PREDNISONE
  11. NOXAFIL [Concomitant]
     Active Substance: POSACONAZOLE
  12. ULORIC [Concomitant]
     Active Substance: FEBUXOSTAT
  13. LISINOPRIL. [Concomitant]
     Active Substance: LISINOPRIL
  14. PRILOSEC [Concomitant]
     Active Substance: OMEPRAZOLE MAGNESIUM
  15. AZITHROMYCIN ANHYDROUS. [Concomitant]
     Active Substance: AZITHROMYCIN ANHYDROUS

REACTIONS (2)
  - Headache [Unknown]
  - Paranasal sinus hypersecretion [Unknown]

NARRATIVE: CASE EVENT DATE: 2020
